FAERS Safety Report 5490404-0 (Version None)
Quarter: 2007Q4

REPORT INFORMATION
  Report Type: 
  Country: None (occurrence: None)
  Receive Date: 20071019
  Receipt Date: 20071011
  Transmission Date: 20080405
  Serious: Yes (Other)
  Sender: FDA-Public Use
  Company Number: PHRM2007FR02404

PATIENT
  Sex: Male

DRUGS (1)
  1. STERDEX (NVO) [Suspect]

REACTIONS (2)
  - CONDITION AGGRAVATED [None]
  - KERATITIS HERPETIC [None]
